FAERS Safety Report 5399699-5 (Version None)
Quarter: 2007Q3

REPORT INFORMATION
  Report Type: 
  Country: None (occurrence: None)
  Receive Date: 20070727
  Receipt Date: 20070717
  Transmission Date: 20080115
  Serious: Yes (Hospitalization)
  Sender: FDA-Public Use
  Company Number: FR-PFIZER INC-2007060239

PATIENT
  Sex: Male

DRUGS (7)
  1. ZAVEDOS POWDER, STERILE [Suspect]
     Route: 042
     Dates: start: 20070511, end: 20070525
  2. KIDROLASE [Suspect]
     Route: 030
     Dates: start: 20070521, end: 20070529
  3. VINCRISTINE ^FAULDING^ [Suspect]
     Route: 042
     Dates: start: 20070511, end: 20070525
  4. CORTANCYL [Suspect]
     Route: 048
     Dates: start: 20070511, end: 20070531
  5. ATARAX [Suspect]
     Route: 048
  6. DI-ANTALVIC [Suspect]
     Route: 048
  7. TRAMADOL HCL [Concomitant]
     Route: 048

REACTIONS (1)
  - PANCREATITIS [None]
